FAERS Safety Report 25731170 (Version 1)
Quarter: 2025Q3

REPORT INFORMATION
  Report Type: Spontaneous
  Country: US (occurrence: US)
  Receive Date: 20250827
  Receipt Date: 20250827
  Transmission Date: 20251020
  Serious: Yes (Other)
  Sender: PFIZER
  Company Number: US-PFIZER INC-202500168628

PATIENT
  Age: 49 Year
  Sex: Female

DRUGS (5)
  1. LEVOTHYROXINE SODIUM [Suspect]
     Active Substance: LEVOTHYROXINE SODIUM
  2. ADDERALL [Suspect]
     Active Substance: AMPHETAMINE ASPARTATE\AMPHETAMINE SULFATE\DEXTROAMPHETAMINE SACCHARATE\DEXTROAMPHETAMINE SULFATE
  3. FIASP [Suspect]
     Active Substance: INSULIN ASPART
  4. JARDIANCE [Suspect]
     Active Substance: EMPAGLIFLOZIN
  5. TRESIBA [Suspect]
     Active Substance: INSULIN DEGLUDEC

REACTIONS (3)
  - Diabetic ketoacidosis [Recovered/Resolved]
  - Postmenopausal haemorrhage [Unknown]
  - Muscle spasms [Unknown]
